FAERS Safety Report 9916634 (Version 3)
Quarter: 2014Q1

REPORT INFORMATION
  Report Type: Report from Study
  Country: CH (occurrence: CH)
  Receive Date: 20140221
  Receipt Date: 20140331
  Transmission Date: 20141002
  Serious: Yes (Hospitalization, Other)
  Sender: FDA-Public Use
  Company Number: CH-INCYTE CORPORATION-2014IN000406

PATIENT
  Sex: Female

DRUGS (2)
  1. INC424 [Suspect]
     Indication: MYELOFIBROSIS
     Dosage: 15 MG, BID
     Route: 048
     Dates: start: 20111024
  2. FRAXIFORTE [Concomitant]
     Dosage: UNK
     Dates: start: 20080309

REACTIONS (3)
  - Procedural haemorrhage [Unknown]
  - Cervicitis [Not Recovered/Not Resolved]
  - Cervical dysplasia [Not Recovered/Not Resolved]
